FAERS Safety Report 5370881-6 (Version None)
Quarter: 2007Q2

REPORT INFORMATION
  Report Type: 
  Country: None (occurrence: None)
  Receive Date: 20070614
  Receipt Date: 20070404
  Transmission Date: 20071010
  Serious: No
  Sender: FDA-Public Use
  Company Number: BDI-009378

PATIENT
  Age: 71 Year
  Sex: Female
  Weight: 100 kg

DRUGS (3)
  1. MULTIHANCE [Suspect]
     Indication: CEREBROVASCULAR ACCIDENT
     Dosage: 20 ML ONCE IV
     Route: 042
     Dates: start: 20070403, end: 20070403
  2. MULTIHANCE [Suspect]
     Indication: NUCLEAR MAGNETIC RESONANCE IMAGING
     Dosage: 20 ML ONCE IV
     Route: 042
     Dates: start: 20070403, end: 20070403
  3. ATIVAN [Concomitant]

REACTIONS (3)
  - BURNING SENSATION [None]
  - EAR DISCOMFORT [None]
  - SNEEZING [None]
